FAERS Safety Report 17185114 (Version 1)
Quarter: 2019Q4

REPORT INFORMATION
  Report Type: Spontaneous
  Country: US (occurrence: US)
  Receive Date: 20191220
  Receipt Date: 20191220
  Transmission Date: 20200122
  Serious: Yes (Hospitalization)
  Sender: FDA-Public Use
  Company Number: US-VERTEX PHARMACEUTICALS-2019-013111

PATIENT
  Sex: Male

DRUGS (9)
  1. ZITHROMAX [Concomitant]
     Active Substance: AZITHROMYCIN DIHYDRATE
  2. PREVACID [Concomitant]
     Active Substance: LANSOPRAZOLE
  3. ALBUTEROL [SALBUTAMOL] [Concomitant]
     Active Substance: ALBUTEROL
  4. HYPERSAL [Concomitant]
     Active Substance: SODIUM CHLORIDE
  5. PANCREASE [PANCREATIN] [Concomitant]
  6. SYMDEKO [Suspect]
     Active Substance: IVACAFTOR\TEZACAFTOR
     Indication: CYSTIC FIBROSIS
     Dosage: 100MG TEZACAFTOR/150MG IVACAFTOR AM; 150MG IVACAFTOR PM, QD
     Route: 048
     Dates: start: 20180606
  7. PULMOZYME [Concomitant]
     Active Substance: DORNASE ALFA
  8. TOBRAMYCIN. [Concomitant]
     Active Substance: TOBRAMYCIN
  9. PROAIR HFA [Concomitant]
     Active Substance: ALBUTEROL SULFATE

REACTIONS (1)
  - Infection [Unknown]

NARRATIVE: CASE EVENT DATE: 2019
